FAERS Safety Report 22208689 (Version 1)
Quarter: 2023Q2

REPORT INFORMATION
  Report Type: Spontaneous
  Country: CN (occurrence: None)
  Receive Date: 20230413
  Receipt Date: 20230413
  Transmission Date: 20230721
  Serious: Yes (Other)
  Sender: FDA-Public Use
  Company Number: 2023A083820

PATIENT
  Age: 46 Year
  Sex: Female

DRUGS (1)
  1. IRESSA [Suspect]
     Active Substance: GEFITINIB
     Indication: Non-small cell lung cancer
     Route: 048
     Dates: start: 2020

REACTIONS (8)
  - Encephalitis [Unknown]
  - Speech disorder [Unknown]
  - Hypoaesthesia [Unknown]
  - Epilepsy [Unknown]
  - Rhinitis [Unknown]
  - COVID-19 [Unknown]
  - Paronychia [Unknown]
  - Rash [Unknown]

NARRATIVE: CASE EVENT DATE: 20220101
